FAERS Safety Report 13509353 (Version 1)
Quarter: 2017Q2

REPORT INFORMATION
  Report Type: Spontaneous
  Country: US (occurrence: US)
  Receive Date: 20170503
  Receipt Date: 20170503
  Transmission Date: 20170830
  Serious: No
  Sender: FDA-Public Use
  Company Number: US-SA-2017SA018843

PATIENT
  Age: 67 Year
  Sex: Female

DRUGS (10)
  1. CLOTRIMAZOLE/BETAMETHASONE [Concomitant]
  2. DIAZEPAM. [Concomitant]
     Active Substance: DIAZEPAM
  3. FLUTICASONE. [Concomitant]
     Active Substance: FLUTICASONE
  4. VICODIN [Concomitant]
     Active Substance: ACETAMINOPHEN\HYDROCODONE BITARTRATE
  5. IPRATROPIUM [Concomitant]
     Active Substance: IPRATROPIUM
  6. CHOLESTYRAMINE. [Concomitant]
     Active Substance: CHOLESTYRAMINE
     Dosage: POWDER
  7. ZOLOFT [Concomitant]
     Active Substance: SERTRALINE HYDROCHLORIDE
  8. PRALUENT [Suspect]
     Active Substance: ALIROCUMAB
     Route: 058
     Dates: start: 20160609
  9. ALIROCUMAB PREFILLED PEN [Concomitant]
     Active Substance: ALIROCUMAB
     Dates: start: 20160609
  10. GLIMEPIRIDE. [Concomitant]
     Active Substance: GLIMEPIRIDE

REACTIONS (1)
  - Muscle spasms [Unknown]
